FAERS Safety Report 5146715-1 (Version None)
Quarter: 2006Q4

REPORT INFORMATION
  Report Type: 
  Country: None (occurrence: None)
  Receive Date: 20061109
  Receipt Date: 20060224
  Transmission Date: 20070319
  Serious: Yes (Other)
  Sender: FDA-Public Use
  Company Number: GB-BRISTOL-MYERS SQUIBB COMPANY-13295589

PATIENT
  Age: 40 Year
  Sex: Female

DRUGS (5)
  1. EFAVIRENZ [Suspect]
     Indication: HIV INFECTION
  2. RIFAMPICIN [Concomitant]
     Indication: PULMONARY TUBERCULOSIS
  3. ISONIAZID [Concomitant]
     Indication: PULMONARY TUBERCULOSIS
  4. ETHAMBUTOL HYDROCHLORIDE [Concomitant]
     Indication: PULMONARY TUBERCULOSIS
  5. PYRAZINAMIDE [Concomitant]
     Indication: PULMONARY TUBERCULOSIS

REACTIONS (5)
  - CEREBELLAR SYNDROME [None]
  - CONFUSIONAL STATE [None]
  - COORDINATION ABNORMAL [None]
  - DRUG HALF-LIFE INCREASED [None]
  - DRUG LEVEL INCREASED [None]
